FAERS Safety Report 6162690-5 (Version None)
Quarter: 2009Q2

REPORT INFORMATION
  Report Type: 
  Country: None (occurrence: None)
  Receive Date: 20090417
  Receipt Date: 20090324
  Transmission Date: 20091009
  Serious: Yes (Hospitalization)
  Sender: FDA-Public Use
  Company Number: 6045477

PATIENT
  Sex: Female

DRUGS (2)
  1. LEVOTHYROXINE SODIUM [Suspect]
     Indication: DRUG USE FOR UNKNOWN INDICATION
     Dosage: ORAL
     Route: 048
     Dates: start: 20080601
  2. PRAXINOR (TABLET) (THEODRENALINE HYDROCHLORIDE, CAFEDRINE HYDROCHLORID [Suspect]
     Indication: HYPOTENSION
     Dosage: ORAL
     Route: 048

REACTIONS (7)
  - FACIAL BONES FRACTURE [None]
  - FALL [None]
  - LOSS OF CONSCIOUSNESS [None]
  - MEDICATION ERROR [None]
  - MOUTH INJURY [None]
  - SYNCOPE [None]
  - TRAUMATIC BRAIN INJURY [None]
